FAERS Safety Report 10304747 (Version 1)
Quarter: 2014Q3

REPORT INFORMATION
  Report Type: Spontaneous
  Country: US (occurrence: None)
  Receive Date: 20140710
  Receipt Date: 20140710
  Transmission Date: 20150326
  Serious: Yes (Hospitalization)
  Sender: FDA-Public Use
  Company Number: None

PATIENT
  Age: 61 Year
  Sex: Male
  Weight: 92.7 kg

DRUGS (2)
  1. CARBOPLATIN. [Suspect]
     Active Substance: CARBOPLATIN
     Dates: end: 20140520
  2. TAXOL [Suspect]
     Active Substance: PACLITAXEL
     Dates: end: 20140520

REACTIONS (6)
  - Radiation oesophagitis [None]
  - Dehydration [None]
  - Constipation [None]
  - Asthenia [None]
  - Dizziness postural [None]
  - Hypokalaemia [None]

NARRATIVE: CASE EVENT DATE: 20140528
